FAERS Safety Report 6502639-6 (Version None)
Quarter: 2009Q4

REPORT INFORMATION
  Report Type: 
  Country: None (occurrence: None)
  Receive Date: 20091217
  Receipt Date: 20091208
  Transmission Date: 20100525
  Serious: Yes (Other)
  Sender: FDA-Public Use
  Company Number: JP-JNJFOC-20091005888

PATIENT
  Sex: Female
  Weight: 45 kg

DRUGS (15)
  1. DOXORUBICIN HCL [Suspect]
     Indication: OVARIAN CANCER RECURRENT
     Dosage: CYCLE 2
     Route: 042
     Dates: start: 20090710, end: 20090810
  2. DOXORUBICIN HCL [Suspect]
     Dosage: CYCLE 1
     Route: 042
     Dates: start: 20090710, end: 20090810
  3. METHYCOBAL [Concomitant]
     Route: 048
  4. BIOFERMIN [Concomitant]
     Route: 048
  5. HEAVY MAGNESIUM OXIDE [Concomitant]
     Route: 048
  6. PARIET [Concomitant]
     Route: 048
  7. EXCELASE [Concomitant]
     Route: 048
  8. JUZENTAIHOTO [Concomitant]
     Route: 048
  9. PYDOXAL [Concomitant]
     Indication: PROPHYLAXIS
     Route: 048
  10. PREDNISOLONE [Concomitant]
     Indication: PROPHYLAXIS
     Route: 048
  11. PREDNISOLONE [Concomitant]
     Route: 048
  12. PREDNISOLONE [Concomitant]
     Route: 048
  13. PREDNISOLONE [Concomitant]
     Route: 048
  14. PREDNISOLONE [Concomitant]
     Route: 048
  15. PREDNISOLONE [Concomitant]
     Route: 048

REACTIONS (2)
  - ARRHYTHMIA [None]
  - WHITE BLOOD CELL COUNT DECREASED [None]
